FAERS Safety Report 7528910-7 (Version None)
Quarter: 2011Q2

REPORT INFORMATION
  Report Type: 
  Country: None (occurrence: None)
  Receive Date: 20110607
  Receipt Date: 20110524
  Transmission Date: 20111010
  Serious: Yes (Other)
  Sender: FDA-Public Use
  Company Number: PHHY2011US45091

PATIENT
  Sex: Female

DRUGS (2)
  1. ANTIBIOTICS [Concomitant]
     Dates: start: 20110523
  2. FEMARA [Suspect]
     Dosage: 2.5 MG, QD

REACTIONS (3)
  - ASTHENIA [None]
  - BRONCHITIS [None]
  - COUGH [None]
